FAERS Safety Report 18592074 (Version 3)
Quarter: 2021Q4

REPORT INFORMATION
  Report Type: Report from Study
  Country: ZA (occurrence: ZA)
  Receive Date: 20201208
  Receipt Date: 20211029
  Transmission Date: 20220303
  Serious: Yes (Hospitalization)
  Sender: FDA-Public Use
  Company Number: NVSC2020ZA322053

PATIENT
  Age: 43 Year
  Sex: Female

DRUGS (7)
  1. FINGOLIMOD HYDROCHLORIDE [Suspect]
     Active Substance: FINGOLIMOD HYDROCHLORIDE
     Indication: Relapsing-remitting multiple sclerosis
     Dosage: 0.5 MG, QD
     Route: 048
     Dates: start: 20190812
  2. TOPAMAX [Concomitant]
     Active Substance: TOPIRAMATE
     Indication: Product used for unknown indication
     Dosage: 10 MG, BID
     Route: 048
  3. AMITRIPTYLINE [Concomitant]
     Active Substance: AMITRIPTYLINE
     Indication: Product used for unknown indication
     Dosage: 25 MG, QW
     Route: 048
  4. ZOPIMED [Concomitant]
     Indication: Product used for unknown indication
     Dosage: 1 DF, QD
     Route: 048
  5. VITAMIN D [Concomitant]
     Active Substance: VITAMIN D NOS
     Indication: Product used for unknown indication
     Dosage: 50000 IU, QW
     Route: 065
  6. FOLIC ACID [Concomitant]
     Active Substance: FOLIC ACID
     Indication: Product used for unknown indication
     Dosage: UNK, TID
     Route: 048
  7. DORMONOCT [Concomitant]
     Active Substance: LOPRAZOLAM
     Indication: Product used for unknown indication
     Dosage: 2 MG, QW
     Route: 048

REACTIONS (5)
  - Multiple sclerosis relapse [Unknown]
  - Paraesthesia [Unknown]
  - Hypoaesthesia [Unknown]
  - Vision blurred [Unknown]
  - Visual acuity reduced [Unknown]

NARRATIVE: CASE EVENT DATE: 20210413
